FAERS Safety Report 7577397-7 (Version None)
Quarter: 2011Q2

REPORT INFORMATION
  Report Type: 
  Country: None (occurrence: None)
  Receive Date: 20110621
  Receipt Date: 20110606
  Transmission Date: 20111010
  Serious: Yes (Disabling)
  Sender: FDA-Public Use
  Company Number: DE-1186465

PATIENT
  Sex: Female
  Weight: 62 kg

DRUGS (5)
  1. ARTELAC ADVANCED EDO [Concomitant]
  2. ALOMIDE [Suspect]
     Dosage: (BID OPHTHALMIC)
     Route: 047
     Dates: start: 20110517, end: 20110519
  3. ALPHAGAN P [Concomitant]
  4. COSOPT S [Concomitant]
  5. TRAVATAN [Concomitant]

REACTIONS (3)
  - HYPERSENSITIVITY [None]
  - EYE PRURITUS [None]
  - BLINDNESS TRANSIENT [None]
